FAERS Safety Report 21488293 (Version 1)
Quarter: 2022Q4

REPORT INFORMATION
  Report Type: Spontaneous
  Country: US (occurrence: None)
  Receive Date: 20221020
  Receipt Date: 20221020
  Transmission Date: 20230112
  Serious: Yes (Hospitalization)
  Sender: FDA-Public Use
  Company Number: None

PATIENT
  Sex: Male

DRUGS (10)
  1. HUMIRA [Suspect]
     Active Substance: ADALIMUMAB
     Indication: Psoriasis
     Dosage: 40 MG/0.4ML ??INJECT 1 PEN (40 MG) UNDER THE SKIN (SUBCUTANEOUS INJECTION)EVERY OTHER WEEK
     Dates: start: 20201229
  2. AMLODIPINE TAB [Concomitant]
  3. BACLOFEN TAB [Concomitant]
  4. CHLORTHLID TAB [Concomitant]
  5. ACETAMINOPHEN\HYDROCODONE [Concomitant]
     Active Substance: ACETAMINOPHEN\HYDROCODONE
  6. MELOXICAM TAB [Concomitant]
  7. MORPHINE SUL CAP [Concomitant]
  8. MORPHINE SUL TAB [Concomitant]
  9. PEG-3350/KCL SOL/SODIUM [Concomitant]
  10. ZALEPLON CAP [Concomitant]

REACTIONS (1)
  - Intentional dose omission [None]
